FAERS Safety Report 6571714-2 (Version None)
Quarter: 2010Q1

REPORT INFORMATION
  Report Type: 
  Country: None (occurrence: None)
  Receive Date: 20100205
  Receipt Date: 20100127
  Transmission Date: 20100710
  Serious: Yes (Hospitalization)
  Sender: FDA-Public Use
  Company Number: US-PERRIGO-10US006366

PATIENT
  Age: 11 Year
  Sex: Male
  Weight: 64.399 kg

DRUGS (4)
  1. ACETAMINOPHEN [Suspect]
     Indication: HEADACHE
     Dosage: 1000 MG, PRN
     Route: 048
     Dates: start: 20091115, end: 20100103
  2. NO DOZ [Suspect]
     Indication: ACCIDENTAL EXPOSURE
     Dosage: UNK
     Route: 048
     Dates: start: 20091115, end: 20100103
  3. ALBUTEROL [Concomitant]
     Indication: ASTHMA
     Dosage: 1 PUFF BID
     Route: 048
  4. ADVAIR DISKUS 100/50 [Concomitant]
     Indication: ASTHMA
     Dosage: 1 PUFF, BID
     Route: 048

REACTIONS (6)
  - ABDOMINAL PAIN [None]
  - CONSTIPATION [None]
  - DEHYDRATION [None]
  - INSOMNIA [None]
  - NAUSEA [None]
  - OFF LABEL USE [None]
